FAERS Safety Report 6859619-0 (Version None)
Quarter: 2010Q3

REPORT INFORMATION
  Report Type: 
  Country: None (occurrence: None)
  Receive Date: 20100719
  Receipt Date: 20080516
  Transmission Date: 20110219
  Serious: Yes (Other)
  Sender: FDA-Public Use
  Company Number: US-PFIZER INC-2008019901

PATIENT
  Sex: Female
  Weight: 80.3 kg

DRUGS (14)
  1. CHANTIX [Suspect]
     Indication: SMOKING CESSATION THERAPY
     Route: 048
     Dates: start: 20071130
  2. NORVASC [Suspect]
  3. MS CONTIN [Concomitant]
  4. TRAZODONE HYDROCHLORIDE [Concomitant]
  5. SOMA [Concomitant]
  6. DILTIAZEM [Concomitant]
  7. METOPROLOL [Concomitant]
  8. ZOCOR [Concomitant]
  9. LAMICTAL [Concomitant]
  10. KLONOPIN [Concomitant]
  11. ROZEREM [Concomitant]
  12. ADDERALL XR 10 [Concomitant]
  13. CYMBALTA [Concomitant]
  14. ACETYLSALICYLIC ACID [Concomitant]

REACTIONS (4)
  - DIZZINESS [None]
  - DRUG HYPERSENSITIVITY [None]
  - INCORRECT DOSE ADMINISTERED [None]
  - VOMITING [None]
